FAERS Safety Report 16060772 (Version 1)
Quarter: 2019Q1

REPORT INFORMATION
  Report Type: Spontaneous
  Country: US (occurrence: US)
  Receive Date: 20190211
  Receipt Date: 20190211
  Transmission Date: 20190418
  Serious: Yes (Hospitalization)
  Sender: FDA-Public Use
  Company Number: None

PATIENT
  Age: 3 Year
  Sex: Female

DRUGS (4)
  1. OMNITROPE [Suspect]
     Active Substance: SOMATROPIN
     Indication: HYPOPITUITARISM
     Dosage: ?          OTHER DOSE:0.5MG;?
     Route: 058
     Dates: start: 20170620
  2. PREDNISOLONE  SOL 15MG/5ML [Concomitant]
     Dates: start: 20180124
  3. LEVOTHYROXINE 75 MCG [Concomitant]
     Dates: start: 20181013
  4. LEVITIRACETAM 100 MG/ML [Concomitant]
     Dates: start: 20190207

REACTIONS (1)
  - Seizure [None]
